FAERS Safety Report 7111985-7 (Version None)
Quarter: 2010Q4

REPORT INFORMATION
  Report Type: 
  Country: None (occurrence: None)
  Receive Date: 20101119
  Receipt Date: 20101116
  Transmission Date: 20110411
  Serious: Yes (Death, Life-Threatening, Hospitalization)
  Sender: FDA-Public Use
  Company Number: JP-EISAI INC.-E2020-06902-CLI-JP

PATIENT
  Sex: Female
  Weight: 40 kg

DRUGS (8)
  1. ARICEPT [Suspect]
     Route: 048
     Dates: start: 20090320, end: 20100302
  2. ARICEPT [Suspect]
     Route: 048
     Dates: start: 20100303, end: 20100319
  3. ARICEPT [Suspect]
     Route: 048
     Dates: start: 20100320, end: 20100614
  4. GRAMALIL [Suspect]
     Indication: DEMENTIA ALZHEIMER'S TYPE
     Route: 048
     Dates: start: 20081118, end: 20100613
  5. VITANEURIN [Concomitant]
     Route: 048
     Dates: end: 20100613
  6. ALFAROL [Concomitant]
     Route: 048
     Dates: end: 20100613
  7. LENDORMIN D [Concomitant]
     Route: 048
     Dates: start: 20081118, end: 20100613
  8. ALOSENN [Concomitant]
     Route: 048
     Dates: start: 20081121

REACTIONS (3)
  - CEREBRAL HAEMORRHAGE [None]
  - PNEUMONIA ASPIRATION [None]
  - REFLUX OESOPHAGITIS [None]
